FAERS Safety Report 8328430-6 (Version None)
Quarter: 2012Q2

REPORT INFORMATION
  Report Type: 
  Country: None (occurrence: None)
  Receive Date: 20120502
  Receipt Date: 20120427
  Transmission Date: 20120825
  Serious: Yes (Death)
  Sender: FDA-Public Use
  Company Number: PHHY2012EC036760

PATIENT
  Sex: Male

DRUGS (1)
  1. EXFORGE [Suspect]
     Indication: HYPERTENSION
     Dosage: 1 DF, QD
     Route: 048
     Dates: start: 20111227

REACTIONS (4)
  - COUGH [None]
  - DYSPNOEA [None]
  - BRONCHOPNEUMONIA [None]
  - GENERAL PHYSICAL HEALTH DETERIORATION [None]
